FAERS Safety Report 10709368 (Version 1)
Quarter: 2015Q1

REPORT INFORMATION
  Report Type: Report from Study
  Country: US (occurrence: US)
  Receive Date: 20150114
  Receipt Date: 20150114
  Transmission Date: 20150721
  Serious: Yes (Congenital Anomaly, Other)
  Sender: FDA-Public Use
  Company Number: US-AUROBINDO-AUR-APL-2015-00174

PATIENT
  Age: 0 Year
  Sex: Male
  Weight: 3.02 kg

DRUGS (3)
  1. LAMIVUDINE AND ZIDOVUDINE [Suspect]
     Active Substance: LAMIVUDINE\ZIDOVUDINE
     Indication: ANTIVIRAL TREATMENT
     Dosage: UNK
     Route: 064
     Dates: start: 20140917
  2. FOLATE [Concomitant]
     Active Substance: FOLATE SODIUM
     Indication: SUPPLEMENTATION THERAPY
     Dosage: UNK
     Route: 064
  3. LOPINAVIR + RITONAVIR [Suspect]
     Active Substance: LOPINAVIR\RITONAVIR
     Indication: ANTIVIRAL TREATMENT
     Dosage: UNK
     Route: 064
     Dates: start: 20140917

REACTIONS (3)
  - Hydronephrosis [Unknown]
  - Foetal exposure during pregnancy [Unknown]
  - Adrenogenital syndrome [Unknown]

NARRATIVE: CASE EVENT DATE: 20141106
